FAERS Safety Report 7813068-7 (Version None)
Quarter: 2011Q4

REPORT INFORMATION
  Report Type: 
  Country: None (occurrence: None)
  Receive Date: 20111013
  Receipt Date: 20111006
  Transmission Date: 20120403
  Serious: Yes (Hospitalization)
  Sender: FDA-Public Use
  Company Number: PHEH2011US04192

PATIENT
  Sex: Female
  Weight: 55.329 kg

DRUGS (11)
  1. LORTAB [Concomitant]
     Dosage: 10-500 MG
  2. PERCOCET [Concomitant]
     Dosage: 10-325 MG
  3. KLONOPIN [Concomitant]
     Dosage: 0.5 MG, UNK
  4. PROCHLOR [Concomitant]
     Dosage: 10 MG, UNK
  5. TEGRETOL [Concomitant]
     Dosage: 200 MG, UNK
  6. LYRICA [Concomitant]
     Dosage: 50 MG, UNK
  7. RITALIN [Concomitant]
     Dosage: 10 MG, UNK
  8. VIMPAT [Concomitant]
     Dosage: 200 MG, UNK
  9. GILENYA [Suspect]
     Indication: MULTIPLE SCLEROSIS
     Dosage: 0.5 MG, DAILY
     Route: 048
     Dates: start: 20110627, end: 20110923
  10. OMEPRAZOLE [Concomitant]
     Dosage: 20 MG, UNK
  11. ZANAFLEX [Concomitant]
     Dosage: 2 MG, UNK

REACTIONS (3)
  - HOT FLUSH [None]
  - HEADACHE [None]
  - GAIT DISTURBANCE [None]
